FAERS Safety Report 4759537-8 (Version None)
Quarter: 2005Q3

REPORT INFORMATION
  Report Type: 
  Country: None (occurrence: None)
  Receive Date: 20050831
  Receipt Date: 20050819
  Transmission Date: 20060218
  Serious: Yes (Other)
  Sender: FDA-Public Use
  Company Number: 2005118017

PATIENT
  Sex: Female
  Weight: 68.0396 kg

DRUGS (6)
  1. CELEBREX [Suspect]
     Indication: ARTHRITIS
     Dosage: 200 MG(200 MG, 1 IN 1 D), ORAL
     Route: 048
  2. BEXTRA [Suspect]
     Indication: ARTHRITIS
     Dosage: (1 IN 1 D), ORAL
     Route: 048
  3. XANAX [Suspect]
     Indication: DEPRESSION
     Dosage: ORAL
     Route: 048
  4. ENALAPRIL MALEATE [Concomitant]
  5. QUININE SULFATE [Concomitant]
  6. ACETYLSALICYLIC ACID SRT [Concomitant]

REACTIONS (10)
  - ARTHRITIS [None]
  - CEREBROVASCULAR ACCIDENT [None]
  - CHRONIC OBSTRUCTIVE PULMONARY DISEASE [None]
  - DEATH OF CHILD [None]
  - DRUG INEFFECTIVE [None]
  - FALL [None]
  - MEMORY IMPAIRMENT [None]
  - OSTEOPOROSIS [None]
  - STRESS [None]
  - WEIGHT INCREASED [None]
